FAERS Safety Report 15494343 (Version 4)
Quarter: 2019Q4

REPORT INFORMATION
  Report Type: Spontaneous
  Country: DK (occurrence: DK)
  Receive Date: 20181012
  Receipt Date: 20191127
  Transmission Date: 20200122
  Serious: Yes (Death, Life-Threatening, Hospitalization, Other)
  Sender: FDA-Public Use
  Company Number: DK-MYLANLABS-DK2013139900

PATIENT
  Age: 91 Year
  Sex: Female

DRUGS (3)
  1. METHOTREXATE. [Suspect]
     Active Substance: METHOTREXATE
     Indication: RHEUMATIC DISORDER
     Dosage: 10 MG, QD, 10 MG, 1X/DAY
  2. METHOTREXATE. [Suspect]
     Active Substance: METHOTREXATE
     Dosage: UNK
  3. METHOTREXATE. [Suspect]
     Active Substance: METHOTREXATE
     Indication: RHEUMATOID ARTHRITIS
     Dosage: 10 MG, 1X/DAY

REACTIONS (10)
  - Product administration error [Fatal]
  - Mucosal inflammation [Unknown]
  - Embolism [Unknown]
  - Off label use [Unknown]
  - Thrombocytopenia [Fatal]
  - Inappropriate schedule of product administration [Fatal]
  - Septic shock [Fatal]
  - Neutropenia [Fatal]
  - Pancytopenia [Unknown]
  - Toxicity to various agents [Unknown]
